FAERS Safety Report 8825392 (Version 1)
Quarter: 2012Q4

REPORT INFORMATION
  Report Type: 
  Country: US (occurrence: US)
  Receive Date: 20121004
  Receipt Date: 20121004
  Transmission Date: 20130627
  Serious: Yes (Hospitalization, Other)
  Sender: FDA-Public Use
  Company Number: US-ROCHE-1132958

PATIENT
  Sex: Female

DRUGS (1)
  1. RITUXAN [Suspect]
     Indication: NON-HODGKIN^S LYMPHOMA
     Route: 065
     Dates: start: 20010108

REACTIONS (5)
  - Chronic obstructive pulmonary disease [Unknown]
  - Hypoxia [Unknown]
  - Fatigue [Unknown]
  - Bronchitis [Unknown]
  - Back pain [Unknown]
